FAERS Safety Report 7784720-7 (Version None)
Quarter: 2011Q3

REPORT INFORMATION
  Report Type: 
  Country: None (occurrence: None)
  Receive Date: 20110926
  Receipt Date: 20110919
  Transmission Date: 20111222
  Serious: Yes (Other)
  Sender: FDA-Public Use
  Company Number: 2011SP044224

PATIENT
  Age: 18 Year
  Sex: Female
  Weight: 61.2356 kg

DRUGS (1)
  1. IMPLANON [Suspect]
     Indication: CONTRACEPTION
     Dates: start: 20110801

REACTIONS (3)
  - LIP SWELLING [None]
  - SWELLING FACE [None]
  - URTICARIA [None]
